FAERS Safety Report 8814519 (Version 2)
Quarter: 2013Q1

REPORT INFORMATION
  Report Type: Spontaneous
  Country: US (occurrence: None)
  Receive Date: 20120925
  Receipt Date: 20121017
  Transmission Date: 20140127
  Serious: Yes (Hospitalization, Other)
  Sender: FDA-Public Use
  Company Number: AUR-APL-2012-04099

PATIENT
  Age: 80 Year
  Sex: Male

DRUGS (3)
  1. CEFTRIAXONE [Suspect]
     Indication: BORDETELLA INFECTION
     Dosage: 2GMS1 IN 12 HRS
     Route: 042
  2. CIPROFLOXACIN (CIPROFLOXACIN) [Suspect]
     Indication: BORDETELLA INFECTION
     Dosage: 750 MG, 1 D), ORAL
     Route: 048
  3. ERTAPENEM [Suspect]
     Indication: BORDETELLA INFECTION

REACTIONS (11)
  - Embolic stroke [None]
  - Pyrexia [None]
  - Malaise [None]
  - Neutropenia [None]
  - Fatigue [None]
  - Dizziness [None]
  - Cardiac valve vegetation [None]
  - Drug resistance [None]
  - Lacunar infarction [None]
  - Night sweats [None]
  - Anaemia [None]
